FAERS Safety Report 7265210-7 (Version None)
Quarter: 2011Q1

REPORT INFORMATION
  Report Type: 
  Country: None (occurrence: None)
  Receive Date: 20110131
  Receipt Date: 20110117
  Transmission Date: 20110831
  Serious: Yes (Other)
  Sender: FDA-Public Use
  Company Number: US-ABBOTT-10P-163-0692806-00

PATIENT
  Age: 84 Year
  Sex: Male

DRUGS (1)
  1. FERROUS SULFATE TAB [Suspect]
     Indication: ANAEMIA

REACTIONS (1)
  - PHARYNGEAL DISORDER [None]
